FAERS Safety Report 8593186-9 (Version None)
Quarter: 2012Q3

REPORT INFORMATION
  Report Type: 
  Country: None (occurrence: None)
  Receive Date: 20120814
  Receipt Date: 20120809
  Transmission Date: 20120928
  Serious: Yes (Death, Other)
  Sender: FDA-Public Use
  Company Number: VE-PFIZER INC-2012169092

PATIENT
  Sex: Female

DRUGS (1)
  1. LIPITOR [Suspect]
     Dosage: UNK
     Route: 048

REACTIONS (5)
  - FALL [None]
  - DEPRESSION [None]
  - PERIPHERAL VASCULAR DISORDER [None]
  - HIP FRACTURE [None]
  - RESPIRATORY ARREST [None]
